FAERS Safety Report 16106491 (Version 1)
Quarter: 2019Q1

REPORT INFORMATION
  Report Type: Report from Study
  Country: DE (occurrence: DE)
  Receive Date: 20190322
  Receipt Date: 20190322
  Transmission Date: 20190418
  Serious: Yes (Other)
  Sender: FDA-Public Use
  Company Number: DE-PFIZER INC-2019023171

PATIENT
  Age: 73 Year
  Sex: Female
  Weight: 57 kg

DRUGS (11)
  1. CARBOPLATIN. [Suspect]
     Active Substance: CARBOPLATIN
     Indication: OVARIAN CANCER
     Dosage: EVERY 3 WEEKS
     Route: 042
     Dates: start: 20130819, end: 20140113
  2. PACLITAXEL. [Suspect]
     Active Substance: PACLITAXEL
     Indication: OVARIAN CANCER
     Dosage: 234-237 MG, EVERY 3 WEEKS
     Route: 042
     Dates: start: 20130819, end: 20140113
  3. CIPROFLOXACIN. [Concomitant]
     Active Substance: CIPROFLOXACIN
     Dosage: 500 MG, 1X/DAY, AS A TREATMENT
     Route: 042
     Dates: start: 20140723, end: 20140727
  4. NEULASTA [Concomitant]
     Active Substance: PEGFILGRASTIM
     Indication: LEUKOPENIA
     Dosage: 6 MG, T2 AFTER CARBOPLATIN AND PACLITAXEL
     Route: 058
     Dates: start: 20130820, end: 20140114
  5. BEVACIZUMAB. [Suspect]
     Active Substance: BEVACIZUMAB
     Indication: OVARIAN CANCER
     Dosage: 570 MG, EVERY 3 WEEKS
     Route: 042
     Dates: start: 20130909, end: 20141126
  6. DEXAMETHASONE. [Concomitant]
     Active Substance: DEXAMETHASONE
     Indication: THROMBOCYTOPENIA
     Dosage: 8 MG,
     Route: 042
     Dates: start: 20140120
  7. FENISTIL [Concomitant]
     Active Substance: DIMETHINDENE
     Indication: HYPERSENSITIVITY
     Dosage: 4 MG, BEFORE EVERY TREATMENT
     Route: 042
     Dates: start: 20130818
  8. NITROLINGUAL [Concomitant]
     Active Substance: NITROGLYCERIN
     Indication: HYPERTENSION
     Dosage: 2 PUFFS, AS NEEDED
     Route: 048
     Dates: start: 20140528, end: 20140528
  9. DEXAMETHASONE. [Concomitant]
     Active Substance: DEXAMETHASONE
     Dosage: 12 MG, 3 DAYS AFTER EVERY TREATMENT WITH
     Route: 048
  10. CIPROFLOXACIN. [Concomitant]
     Active Substance: CIPROFLOXACIN
     Indication: URINARY TRACT INFECTION
     Dosage: 500 MG,
     Route: 042
     Dates: start: 20140307, end: 20141115
  11. DEXAMETHASONE. [Concomitant]
     Active Substance: DEXAMETHASONE
     Indication: NAUSEA
     Dosage: 20 MG, BEFORE EVERY CARBOPLATIN AND PACLITAXEL TREATMENT
     Route: 042
     Dates: start: 20130819, end: 20140113

REACTIONS (7)
  - Urinary tract infection [Recovered/Resolved]
  - Hypothyroidism [Recovering/Resolving]
  - Anaemia [Recovered/Resolved]
  - Neutropenia [Unknown]
  - Cystitis [Recovered/Resolved]
  - Leukopenia [Recovered/Resolved]
  - Thrombocytopenia [Recovered/Resolved]

NARRATIVE: CASE EVENT DATE: 20131021
